FAERS Safety Report 6895927-5 (Version None)
Quarter: 2010Q3

REPORT INFORMATION
  Report Type: 
  Country: None (occurrence: None)
  Receive Date: 20100802
  Receipt Date: 20100720
  Transmission Date: 20110219
  Serious: Yes (Disabling)
  Sender: FDA-Public Use
  Company Number: US-BAYER-201017102NA

PATIENT
  Age: 76 Year
  Sex: Female

DRUGS (9)
  1. SOTALOL HCL [Suspect]
     Indication: ATRIAL FIBRILLATION
     Route: 065
     Dates: start: 20090201, end: 20100201
  2. PRED FORTE [Concomitant]
  3. AMIODARONE HCL [Concomitant]
  4. WARFARIN SODIUM [Concomitant]
  5. VOLTAREN [Concomitant]
  6. LUMIGAN [Concomitant]
  7. DELTAZEN [Concomitant]
  8. LIPITOR [Concomitant]
  9. LASIX [Concomitant]

REACTIONS (2)
  - INTRAOCULAR PRESSURE DECREASED [None]
  - VISUAL ACUITY REDUCED [None]
